FAERS Safety Report 6840985-7 (Version None)
Quarter: 2010Q3

REPORT INFORMATION
  Report Type: 
  Country: None (occurrence: None)
  Receive Date: 20100714
  Receipt Date: 20070621
  Transmission Date: 20110219
  Serious: No
  Sender: FDA-Public Use
  Company Number: US-PFIZER INC-2007052369

PATIENT
  Sex: Female
  Weight: 81.818 kg

DRUGS (5)
  1. CHANTIX [Suspect]
     Indication: SMOKING CESSATION THERAPY
     Dates: start: 20070613
  2. TOPAMAX [Concomitant]
  3. PLENDIL [Concomitant]
  4. HYZAAR [Concomitant]
  5. ZYRTEC [Concomitant]

REACTIONS (1)
  - STRESS [None]
